FAERS Safety Report 5402474-6 (Version None)
Quarter: 2007Q3

REPORT INFORMATION
  Report Type: 
  Country: None (occurrence: None)
  Receive Date: 20070801
  Receipt Date: 20060707
  Transmission Date: 20080115
  Serious: No
  Sender: FDA-Public Use
  Company Number: A0611434A

PATIENT
  Age: 50 Year
  Sex: Female

DRUGS (6)
  1. IMITREX [Suspect]
     Indication: MIGRAINE
     Dosage: 100MG AS REQUIRED
     Route: 048
     Dates: start: 20010101
  2. VERAPAMIL [Concomitant]
  3. SYNTHROID [Concomitant]
  4. REQUIP [Concomitant]
  5. SINGULAIR [Concomitant]
  6. ALLERGY MEDICATION [Concomitant]

REACTIONS (2)
  - DRUG INEFFECTIVE [None]
  - MIGRAINE [None]
